FAERS Safety Report 12675754 (Version 2)
Quarter: 2018Q3

REPORT INFORMATION
  Report Type: Spontaneous
  Country: US (occurrence: US)
  Receive Date: 20160823
  Receipt Date: 20180718
  Transmission Date: 20181010
  Serious: No
  Sender: FDA-Public Use
  Company Number: US-JAZZ-2016-US-006671

PATIENT
  Sex: Female

DRUGS (23)
  1. NUVIGIL [Concomitant]
     Active Substance: ARMODAFINIL
  2. DELSYM [Concomitant]
     Active Substance: DEXTROMETHORPHAN
  3. MIRALAX [Concomitant]
     Active Substance: POLYETHYLENE GLYCOL 3350
  4. PREVIDENT [Concomitant]
     Active Substance: SODIUM FLUORIDE
  5. SPIRONOLACTONE. [Concomitant]
     Active Substance: SPIRONOLACTONE
  6. CABERGOLINE. [Concomitant]
     Active Substance: CABERGOLINE
  7. XYREM [Suspect]
     Active Substance: SODIUM OXYBATE
     Indication: CATAPLEXY
     Dosage: DOSE ADJUSTMENTS
     Route: 048
  8. XYREM [Suspect]
     Active Substance: SODIUM OXYBATE
     Dosage: 4.5 G, BID
     Route: 048
     Dates: start: 201203
  9. DIFLUCAN [Concomitant]
     Active Substance: FLUCONAZOLE
  10. ESCITALOPRAM [Concomitant]
     Active Substance: ESCITALOPRAM OXALATE
  11. ACETAMINOPHEN. [Concomitant]
     Active Substance: ACETAMINOPHEN
  12. CLONAZEPAM. [Concomitant]
     Active Substance: CLONAZEPAM
  13. TESTOSTERONE. [Concomitant]
     Active Substance: TESTOSTERONE
  14. CANASA [Concomitant]
     Active Substance: MESALAMINE
  15. SUDAFED PE CONGESTION [Concomitant]
     Active Substance: PHENYLEPHRINE HYDROCHLORIDE
  16. LIALDA [Concomitant]
     Active Substance: MESALAMINE
  17. VIVELLE?DOT [Concomitant]
     Active Substance: ESTRADIOL
  18. IBUPROFEN. [Concomitant]
     Active Substance: IBUPROFEN
  19. OMEPRAZOLE. [Concomitant]
     Active Substance: OMEPRAZOLE
  20. DICHLORALPHENAZONE W/ISOMETHEPTENE/PARACETAMO [Concomitant]
  21. XYREM [Suspect]
     Active Substance: SODIUM OXYBATE
     Indication: NARCOLEPSY
     Dosage: 2.25 G, BID
     Route: 048
     Dates: start: 201202, end: 201202
  22. NITROFURANTOIN. [Concomitant]
     Active Substance: NITROFURANTOIN
  23. BUSPIRONE HCL [Concomitant]
     Active Substance: BUSPIRONE HYDROCHLORIDE

REACTIONS (2)
  - Seasonal allergy [Recovered/Resolved]
  - Condition aggravated [Recovered/Resolved]
